FAERS Safety Report 8417387 (Version 5)
Quarter: 2013Q2

REPORT INFORMATION
  Report Type: Spontaneous
  Country: US (occurrence: US)
  Receive Date: 20120220
  Receipt Date: 20130412
  Transmission Date: 20140414
  Serious: Yes (Hospitalization, Other)
  Sender: FDA-Public Use
  Company Number: US-RB-037216-12

PATIENT
  Age: 1 Day
  Sex: Male

DRUGS (2)
  1. SUBOXONE TABLETS [Suspect]
     Indication: DRUG DEPENDENCE
     Dosage: 16 MG, TAPERED TO 4 OR 6 MG DAILY
     Route: 064
     Dates: start: 20110525, end: 20120207
  2. SUBOXONE FILM [Suspect]
     Indication: DRUG DEPENDENCE
     Dosage: SUBOXONE FILM; 4-6 MG DAILY
     Route: 063
     Dates: start: 20120222, end: 201204

REACTIONS (9)
  - Foetal exposure during pregnancy [Recovered/Resolved]
  - Transient tachypnoea of the newborn [Recovered/Resolved]
  - Neonatal disorder [Recovered/Resolved]
  - Neonatal tachypnoea [Recovered/Resolved]
  - Oxygen saturation decreased [Recovered/Resolved]
  - Tremor neonatal [Recovered/Resolved]
  - Exposure during breast feeding [Recovered/Resolved]
  - Agitation neonatal [Recovered/Resolved]
  - Gastrooesophageal reflux disease [Recovered/Resolved]
